FAERS Safety Report 8221849-3 (Version None)
Quarter: 2012Q1

REPORT INFORMATION
  Report Type: 
  Country: None (occurrence: None)
  Receive Date: 20120316
  Receipt Date: 20120228
  Transmission Date: 20120608
  Serious: Yes (Other)
  Sender: FDA-Public Use
  Company Number: JPI-P-020037

PATIENT
  Age: 2 Decade
  Sex: Male

DRUGS (2)
  1. XYREM [Suspect]
     Indication: CATAPLEXY
     Dosage: (3-6 GRAMS (GM) DAILY), ORAL
     Route: 048
  2. MAZINDOL [Suspect]
     Indication: CATAPLEXY
     Dosage: (4 MG, 1 D)

REACTIONS (3)
  - PALPITATIONS [None]
  - DRUG INEFFECTIVE [None]
  - SYNCOPE [None]
